FAERS Safety Report 5928330-2 (Version None)
Quarter: 2008Q4

REPORT INFORMATION
  Report Type: 
  Country: None (occurrence: None)
  Receive Date: 20081021
  Receipt Date: 20081006
  Transmission Date: 20090506
  Serious: Yes (Hospitalization)
  Sender: FDA-Public Use
  Company Number: 2004S1001896

PATIENT
  Age: 12 Year
  Sex: Female

DRUGS (13)
  1. MERCAPTAMINE BITARTRATE (MERCAPTAMINE BITARTRATE) [Suspect]
     Indication: CYSTINOSIS
     Dosage: 44 MG/KG;DAILY; 89 MG/KG;DAILY
     Dates: end: 20030501
  2. MERCAPTAMINE BITARTRATE (MERCAPTAMINE BITARTRATE) [Suspect]
     Indication: CYSTINOSIS
     Dosage: 44 MG/KG;DAILY; 89 MG/KG;DAILY
     Dates: start: 19981104
  3. MERCAPTAMINE BITARTRATE (MERCAPTAMINE BITARTRATE) [Suspect]
     Indication: CYSTINOSIS
     Dosage: 44 MG/KG;DAILY; 89 MG/KG;DAILY
     Dates: start: 20030501
  4. MERCAPTAMINE BITARTRATE (MERCAPTAMINE BITARTRATE) [Suspect]
     Indication: CYSTINOSIS
     Dosage: 44 MG/KG;DAILY; 89 MG/KG;DAILY
     Dates: start: 20030601
  5. LAMOTRIGINE [Concomitant]
  6. PHENYTOIN [Concomitant]
  7. RANITIDINE [Concomitant]
  8. NIFEDIPINE [Concomitant]
  9. THYROXINE [Concomitant]
  10. ALFACALCIDOL [Concomitant]
  11. FOLIC ACID [Concomitant]
  12. CALCIUM CARBONATE [Concomitant]
  13. KETOVITE /00479801/ [Concomitant]

REACTIONS (12)
  - AMNESIA [None]
  - ANAEMIA [None]
  - CEREBRAL ATROPHY [None]
  - CONVULSION [None]
  - ENCEPHALOPATHY [None]
  - GASTROINTESTINAL DISORDER [None]
  - GASTROOESOPHAGEAL REFLUX DISEASE [None]
  - HAEMODIALYSIS [None]
  - NEUROLOGICAL DECOMPENSATION [None]
  - SERUM FERRITIN INCREASED [None]
  - TRANSPLANT [None]
  - VOMITING [None]
